FAERS Safety Report 8838117 (Version 1)
Quarter: 2012Q4

REPORT INFORMATION
  Report Type: 
  Country: US (occurrence: US)
  Receive Date: 20121012
  Receipt Date: 20121012
  Transmission Date: 20130627
  Serious: No
  Sender: FDA-Public Use
  Company Number: US-ROCHE-GNE239712

PATIENT
  Age: 12 Year
  Sex: Male
  Weight: 32.23 kg

DRUGS (3)
  1. NUTROPIN AQ [Suspect]
     Indication: GROWTH HORMONE DEFICIENCY
     Dosage: 1.5 mg, qd
     Route: 058
     Dates: start: 20070326
  2. NUTROPIN AQ [Suspect]
     Indication: FOETAL GROWTH RESTRICTION
  3. NUTROPIN AQ [Suspect]
     Indication: FOETAL MALNUTRITION

REACTIONS (2)
  - Acarodermatitis [Unknown]
  - Hypersensitivity [Unknown]
